FAERS Safety Report 18087601 (Version 1)
Quarter: 2020Q3

REPORT INFORMATION
  Report Type: Spontaneous
  Country: US (occurrence: US)
  Receive Date: 20200729
  Receipt Date: 20200729
  Transmission Date: 20201103
  Serious: Yes (Hospitalization, Other)
  Sender: FDA-Public Use
  Company Number: US-SA-2020SA194369

PATIENT

DRUGS (3)
  1. AUBAGIO [Suspect]
     Active Substance: TERIFLUNOMIDE
     Indication: MULTIPLE SCLEROSIS
     Dosage: 14 MG, QD
     Route: 048
     Dates: start: 201701
  2. AUBAGIO [Suspect]
     Active Substance: TERIFLUNOMIDE
     Indication: LUNG CARCINOMA CELL TYPE UNSPECIFIED STAGE I
  3. TAGRISSO [Concomitant]
     Active Substance: OSIMERTINIB

REACTIONS (2)
  - Product use in unapproved indication [Unknown]
  - Thrombosis [Unknown]

NARRATIVE: CASE EVENT DATE: 201701
